FAERS Safety Report 12643583 (Version 1)
Quarter: 2016Q3

REPORT INFORMATION
  Report Type: Report from Study
  Country: US (occurrence: US)
  Receive Date: 20160811
  Receipt Date: 20160811
  Transmission Date: 20161109
  Serious: Yes (Other)
  Sender: FDA-Public Use
  Company Number: PHEH2016US019989

PATIENT
  Age: 89 Year
  Weight: 72.57 kg

DRUGS (1)
  1. AFINITOR [Suspect]
     Active Substance: EVEROLIMUS
     Indication: BREAST CANCER
     Dosage: 5 MG, QD
     Route: 048
     Dates: start: 20160318, end: 20160509

REACTIONS (2)
  - Skin ulcer [Unknown]
  - Stomatitis [Unknown]

NARRATIVE: CASE EVENT DATE: 20160805
